FAERS Safety Report 4860909-1 (Version None)
Quarter: 2005Q4

REPORT INFORMATION
  Report Type: 
  Country: None (occurrence: None)
  Receive Date: 20051220
  Receipt Date: 20051114
  Transmission Date: 20060501
  Serious: Yes (Hospitalization)
  Sender: FDA-Public Use
  Company Number: US-GILEAD-2005-0008932

PATIENT
  Sex: Female

DRUGS (2)
  1. HEPSERA [Suspect]
     Indication: HEPATITIS B
     Route: 048
     Dates: start: 20050901, end: 20051101
  2. EPIVIR [Concomitant]
     Indication: HEPATITIS B
     Route: 048
     Dates: start: 20050901, end: 20051101

REACTIONS (7)
  - ABDOMINAL DISTENSION [None]
  - ASTHENIA [None]
  - DYSPNOEA [None]
  - FATIGUE [None]
  - MYOPATHY [None]
  - NAUSEA [None]
  - RASH [None]
